FAERS Safety Report 9259568 (Version 4)
Quarter: 2014Q1

REPORT INFORMATION
  Report Type: Spontaneous
  Country: US (occurrence: US)
  Receive Date: 20130429
  Receipt Date: 20140108
  Transmission Date: 20141002
  Serious: Yes (Disabling, Other)
  Sender: FDA-Public Use
  Company Number: US-ASTRAZENECA-2013SE27684

PATIENT
  Age: 54 Year
  Sex: Female
  Weight: 56.7 kg

DRUGS (36)
  1. NEXIUM [Suspect]
     Indication: GASTROOESOPHAGEAL REFLUX DISEASE
     Route: 048
     Dates: start: 1988
  2. NEXIUM [Suspect]
     Indication: DYSPEPSIA
     Route: 048
     Dates: start: 1988
  3. NEXIUM [Suspect]
     Indication: GASTROOESOPHAGEAL REFLUX DISEASE
     Route: 048
     Dates: start: 20040222
  4. NEXIUM [Suspect]
     Indication: DYSPEPSIA
     Route: 048
     Dates: start: 20040222
  5. NEXIUM [Suspect]
     Indication: GASTROOESOPHAGEAL REFLUX DISEASE
     Route: 048
     Dates: start: 20130708
  6. NEXIUM [Suspect]
     Indication: DYSPEPSIA
     Route: 048
     Dates: start: 20130708
  7. OMEP/ SUCR [Concomitant]
     Indication: GASTROOESOPHAGEAL REFLUX DISEASE
     Dosage: 30 CC DAILY
     Route: 048
     Dates: start: 20130418
  8. IBUPROFEN [Concomitant]
     Indication: PAIN
  9. FLEXERIL [Concomitant]
     Indication: PAIN
     Dosage: 2 X DAILY PRN
     Route: 048
     Dates: start: 201302
  10. FLEXERIL [Concomitant]
     Indication: BONE PAIN
     Dosage: 2 X DAILY PRN
     Route: 048
     Dates: start: 201302
  11. MAGNESIUM [Concomitant]
     Indication: NERVOUS SYSTEM DISORDER
     Route: 048
     Dates: start: 201106
  12. HYDROCODONE ACETOAMINOPHEN [Concomitant]
     Indication: BACK PAIN
     Dates: start: 20040112
  13. CALTRATE+D1+D [Concomitant]
     Indication: OSTEOPOROSIS
     Dates: start: 201106, end: 2013
  14. ATELVIA [Concomitant]
     Indication: OSTEOPOROSIS
     Route: 048
     Dates: start: 201106
  15. ALKA-SELTER [Concomitant]
     Indication: GASTROOESOPHAGEAL REFLUX DISEASE
     Dosage: PRN
  16. ALKA-SELTER [Concomitant]
     Indication: OESOPHAGEAL ULCER
     Dosage: PRN
  17. TUMS [Concomitant]
     Indication: GASTROOESOPHAGEAL REFLUX DISEASE
     Dosage: PRN
  18. TUMS [Concomitant]
     Indication: OESOPHAGEAL ULCER
     Dosage: PRN
  19. VICODIN [Concomitant]
     Indication: PAIN
     Dates: start: 2010
  20. PREMARIN [Concomitant]
     Dates: start: 2002, end: 2004
  21. OMEGA D3 [Concomitant]
     Indication: NERVOUS SYSTEM DISORDER
     Dates: start: 201106
  22. VIT D [Concomitant]
     Dates: start: 201106
  23. XANAX [Concomitant]
     Indication: MAJOR DEPRESSION
  24. AMBIEN [Concomitant]
     Indication: MAJOR DEPRESSION
  25. WELLBUTRIN [Concomitant]
     Indication: MAJOR DEPRESSION
  26. LAMOTRIGINE [Concomitant]
     Indication: MAJOR DEPRESSION
  27. PREDNISONE [Concomitant]
     Dates: start: 20031207
  28. AMANTANIDE [Concomitant]
     Dates: start: 20031207
  29. LEVAQUIN [Concomitant]
     Dates: start: 20031207
  30. LEXAPRO [Concomitant]
     Dates: start: 20040112
  31. ZYVOX [Concomitant]
     Dates: start: 20040130
  32. PROMETHAZINE [Concomitant]
     Dates: start: 20040130
  33. FUROSEMIDE [Concomitant]
     Dates: start: 20040130
  34. LUNESTA [Concomitant]
     Route: 048
     Dates: start: 20060509
  35. CYMBALTA [Concomitant]
     Route: 048
     Dates: start: 20060601
  36. RANITIDINE [Concomitant]
     Dates: start: 2003

REACTIONS (24)
  - Lymphoma [Unknown]
  - Major depression [Unknown]
  - Osteoporosis [Unknown]
  - Multiple fractures [Unknown]
  - Bone pain [Unknown]
  - Calcium deficiency [Unknown]
  - Vitamin D deficiency [Unknown]
  - Magnesium deficiency [Unknown]
  - Myalgia [Unknown]
  - Activities of daily living impaired [Unknown]
  - Arthralgia [Unknown]
  - Back pain [Unknown]
  - Stress [Unknown]
  - Pneumonia [Unknown]
  - Oesophageal ulcer [Unknown]
  - Muscle atrophy [Unknown]
  - Pain [Unknown]
  - Bone disorder [Unknown]
  - Osteopenia [Unknown]
  - Paraesthesia [Unknown]
  - Pain in extremity [Unknown]
  - Muscular weakness [Unknown]
  - Anxiety [Unknown]
  - Insomnia [Unknown]
